FAERS Safety Report 20852212 (Version 3)
Quarter: 2022Q2

REPORT INFORMATION
  Report Type: Report from Study
  Country: US (occurrence: US)
  Receive Date: 20220520
  Receipt Date: 20220622
  Transmission Date: 20220721
  Serious: Yes (Hospitalization, Other)
  Sender: FDA-Public Use
  Company Number: US-SANOFI-01090500

PATIENT
  Age: 57 Year
  Sex: Female

DRUGS (4)
  1. DUPILUMAB [Suspect]
     Active Substance: DUPILUMAB
     Indication: Dermatitis atopic
     Dosage: 600 MG, 1X
     Route: 058
     Dates: start: 20220426, end: 20220426
  2. DUPILUMAB [Suspect]
     Active Substance: DUPILUMAB
     Indication: Asthma
     Dosage: 300 MG, QOW
     Route: 058
     Dates: start: 20220520
  3. DUPILUMAB [Suspect]
     Active Substance: DUPILUMAB
     Indication: Eczema
  4. DEXAMETHASONE [Concomitant]
     Active Substance: DEXAMETHASONE

REACTIONS (24)
  - Pulmonary oedema [Recovering/Resolving]
  - Dyspnoea [Recovering/Resolving]
  - Cough [Unknown]
  - Lymphadenopathy [Not Recovered/Not Resolved]
  - Abdominal distension [Not Recovered/Not Resolved]
  - Hypersensitivity [Recovering/Resolving]
  - Peripheral swelling [Not Recovered/Not Resolved]
  - Lymphadenopathy [Not Recovered/Not Resolved]
  - Injection site swelling [Unknown]
  - Injection site erythema [Unknown]
  - Illness [Recovering/Resolving]
  - Pharyngeal swelling [Recovering/Resolving]
  - Headache [Recovering/Resolving]
  - Vomiting [Recovering/Resolving]
  - Dysuria [Recovering/Resolving]
  - Abdominal discomfort [Unknown]
  - Urinary tract infection [Unknown]
  - Cystitis [Unknown]
  - Condition aggravated [Recovering/Resolving]
  - Pain [Unknown]
  - Liver disorder [Unknown]
  - Drug hypersensitivity [Not Recovered/Not Resolved]
  - Wrong technique in product usage process [Unknown]
  - Product preparation error [Unknown]

NARRATIVE: CASE EVENT DATE: 20220101
